FAERS Safety Report 19452351 (Version 1)
Quarter: 2021Q2

REPORT INFORMATION
  Report Type: Report from Study
  Country: None (occurrence: US)
  Receive Date: 20210623
  Receipt Date: 20210623
  Transmission Date: 20210717
  Serious: Yes (Other)
  Sender: FDA-Public Use
  Company Number: US-ABBVIE-21K-163-3956013-00

PATIENT
  Age: 69 Year
  Sex: Female

DRUGS (1)
  1. HUMIRA [Suspect]
     Active Substance: ADALIMUMAB
     Indication: PSORIASIS
     Dosage: CITRATE FREE
     Route: 058

REACTIONS (6)
  - Gastric bypass [Unknown]
  - Pruritus [Unknown]
  - Pain [Unknown]
  - Malaise [Unknown]
  - Skin exfoliation [Unknown]
  - Post procedural complication [Unknown]

NARRATIVE: CASE EVENT DATE: 20210616
